FAERS Safety Report 6754693-4 (Version None)
Quarter: 2010Q2

REPORT INFORMATION
  Report Type: 
  Country: None (occurrence: None)
  Receive Date: 20100603
  Receipt Date: 20100525
  Transmission Date: 20101027
  Serious: Yes (Hospitalization)
  Sender: FDA-Public Use
  Company Number: US-AMGEN-QUU395513

PATIENT
  Sex: Female
  Weight: 51.8 kg

DRUGS (2)
  1. ENBREL [Suspect]
     Indication: RHEUMATOID ARTHRITIS
     Route: 058
     Dates: start: 20010101
  2. CELEBREX [Concomitant]

REACTIONS (2)
  - OSTEOPOROSIS [None]
  - RHEUMATOID ARTHRITIS [None]
